FAERS Safety Report 12869316 (Version 2)
Quarter: 2017Q1

REPORT INFORMATION
  Report Type: Spontaneous
  Country: US (occurrence: US)
  Receive Date: 20161021
  Receipt Date: 20170126
  Transmission Date: 20170428
  Serious: No
  Sender: FDA-Public Use
  Company Number: US-PFIZER INC-2016489387

PATIENT
  Age: 62 Year
  Sex: Male

DRUGS (1)
  1. KERYDIN [Suspect]
     Active Substance: TAVABOROLE
     Indication: ONYCHOMYCOSIS
     Dosage: 10 MG, UNK
     Route: 061
     Dates: start: 201510

REACTIONS (1)
  - Drug ineffective [Unknown]
